FAERS Safety Report 15279340 (Version 1)
Quarter: 2018Q3

REPORT INFORMATION
  Report Type: Spontaneous
  Country: US (occurrence: US)
  Receive Date: 20180730
  Receipt Date: 20180730
  Transmission Date: 20181010
  Serious: Yes (Disabling, Other)
  Sender: FDA-Public Use
  Company Number: None

PATIENT
  Age: 68 Year
  Sex: Male
  Weight: 99.79 kg

DRUGS (15)
  1. ALPHA LIPOIC ACID W L?CARNITINE [Concomitant]
  2. TUMERIC [Concomitant]
     Active Substance: HERBALS\TURMERIC
  3. METHYCABALOMIN [Concomitant]
  4. LIQUID D?3 [Concomitant]
  5. L?GLUTAMIN POWDER [Concomitant]
  6. GABA [Concomitant]
     Active Substance: HOMEOPATHICS
  7. SULFAMETHOXAZOLE?TRIME800?GENERIC VERSION [Suspect]
     Active Substance: SULFAMETHOXAZOLE\TRIMETHOPRIM
     Indication: URINARY TRACT INFECTION
     Dosage: 2 PILLS/DAY FOR 7 DAYS, THEN 1/DAY FOR 30 DAYS, BY MOUTH?          ?
     Route: 048
     Dates: start: 20180717, end: 20180719
  8. VITAMIN C [Concomitant]
     Active Substance: ASCORBIC ACID
  9. BABY ASPIRIN [Concomitant]
     Active Substance: ASPIRIN
  10. STOOL SOFTENER (DOCUSATE) [Concomitant]
     Active Substance: DOCUSATE
  11. METHYL FOLATE [Concomitant]
  12. MELATONIN [Concomitant]
     Active Substance: MELATONIN
  13. NEURONTIN [Concomitant]
     Active Substance: GABAPENTIN
  14. COLLAGEN [Concomitant]
     Active Substance: COLLAGEN
  15. DMAE [Concomitant]

REACTIONS (11)
  - Rash [None]
  - Pruritus [None]
  - Lip swelling [None]
  - Oral pain [None]
  - Erythema [None]
  - Skin erosion [None]
  - Oropharyngeal pain [None]
  - Tongue discomfort [None]
  - Fluid intake reduced [None]
  - Urticaria [None]
  - Glossodynia [None]

NARRATIVE: CASE EVENT DATE: 20180718
